FAERS Safety Report 9457793 (Version 3)
Quarter: 2013Q3

REPORT INFORMATION
  Report Type: Spontaneous
  Country: ES (occurrence: ES)
  Receive Date: 20130814
  Receipt Date: 20130822
  Transmission Date: 20140515
  Serious: Yes (Other)
  Sender: FDA-Public Use
  Company Number: PHHY2013ES087111

PATIENT
  Age: 66 Year
  Sex: Female

DRUGS (5)
  1. CERTICAN [Suspect]
     Indication: LIVER TRANSPLANT
     Dosage: 0.75 MG, BID
     Route: 048
     Dates: start: 20120427
  2. URSOBILANE [Concomitant]
     Dosage: 300 MG, TID
     Route: 048
  3. NOVOMIX [Concomitant]
     Dosage: UNK 20-10-17 UNITS, TID
  4. IDEOS [Concomitant]
     Dosage: 1 DF, BID
     Route: 048
  5. OMEPRAZOLE [Concomitant]
     Dosage: 20 MG, QD
     Route: 048

REACTIONS (7)
  - Nasal necrosis [Not Recovered/Not Resolved]
  - Epistaxis [Not Recovered/Not Resolved]
  - Thrombosis [Not Recovered/Not Resolved]
  - Nasal septum perforation [Unknown]
  - Liver disorder [Unknown]
  - Hypertension [Unknown]
  - Portal vein thrombosis [Unknown]
